FAERS Safety Report 5968495-X (Version None)
Quarter: 2008Q4

REPORT INFORMATION
  Report Type: 
  Country: None (occurrence: None)
  Receive Date: 20081121
  Receipt Date: 20081121
  Transmission Date: 20090506
  Serious: Yes (Hospitalization)
  Sender: FDA-Public Use
  Company Number: None

PATIENT
  Age: 64 Year
  Sex: Male
  Weight: 88.6 kg

DRUGS (1)
  1. CETUXIMAB 250MG/M2 BRISTOL-MEYER SQUIBB [Suspect]
     Indication: METASTATIC GASTRIC CANCER
     Dosage: 520MG WEEKLY IV BOLUS
     Route: 040
     Dates: start: 20081105, end: 20081119

REACTIONS (2)
  - GASTRIC ULCER [None]
  - GASTROINTESTINAL HAEMORRHAGE [None]
